FAERS Safety Report 14639197 (Version 5)
Quarter: 2018Q2

REPORT INFORMATION
  Report Type: Report from Study
  Country: CA (occurrence: CA)
  Receive Date: 20180315
  Receipt Date: 20180418
  Transmission Date: 20180711
  Serious: Yes (Other)
  Sender: FDA-Public Use
  Company Number: CA-ROCHE-2078354

PATIENT
  Age: 56 Year
  Sex: Female
  Weight: 64 kg

DRUGS (13)
  1. VEMURAFENIB. [Suspect]
     Active Substance: VEMURAFENIB
     Indication: MALIGNANT MELANOMA
     Dosage: DATE OF MOST RECENT DOSE 4 TABLETS MG WAS ON 15/FEB/2018?THERAPY RESTARTED WITH 1 DOSE LEVEL DOWN?ON
     Route: 048
     Dates: start: 20171214
  2. MOTRIN [Concomitant]
     Active Substance: IBUPROFEN
     Indication: PYREXIA
  3. ELOCOM [Concomitant]
     Active Substance: MOMETASONE FUROATE
     Indication: RASH PRURITIC
     Route: 061
     Dates: start: 20180104
  4. COBIMETINIB. [Suspect]
     Active Substance: COBIMETINIB
     Indication: MALIGNANT MELANOMA
     Dosage: (THREE, 20 MG TABLETS) ON DAYS 1 TO 21 ?DATE OF MOST RECENT DOSE 60 MG WAS ON 15/FEB/2018?THERAPY RE
     Route: 048
     Dates: start: 20171214
  5. ATIVAN [Concomitant]
     Active Substance: LORAZEPAM
     Indication: INSOMNIA
     Route: 065
     Dates: start: 201709
  6. MOTRIN [Concomitant]
     Active Substance: IBUPROFEN
     Indication: HEADACHE
     Dosage: FOR CHILLS
     Route: 065
  7. BLINDED ATEZOLIZUMAB [Suspect]
     Active Substance: ATEZOLIZUMAB
     Indication: MALIGNANT MELANOMA
     Dosage: ON DAY 1 AND 15?DATE OF MOST RECENT DOSE WAS ON 09/FEB/2018
     Route: 042
     Dates: start: 20180112
  8. MOTRIN [Concomitant]
     Active Substance: IBUPROFEN
     Indication: INTERVERTEBRAL DISC PROTRUSION
     Route: 065
     Dates: start: 1981
  9. EFFEXOR [Concomitant]
     Active Substance: VENLAFAXINE HYDROCHLORIDE
     Indication: DEPRESSION
     Route: 065
     Dates: start: 201709
  10. BETADERM (CANADA) [Concomitant]
     Indication: PRURITUS
     Route: 065
     Dates: start: 20170302
  11. ADVIL [Concomitant]
     Active Substance: IBUPROFEN
     Indication: CHEST PAIN
     Route: 065
     Dates: start: 20171128, end: 20171227
  12. KEPPRA [Concomitant]
     Active Substance: LEVETIRACETAM
     Indication: SEIZURE
     Route: 065
     Dates: start: 20170402
  13. MOTRIN [Concomitant]
     Active Substance: IBUPROFEN
     Indication: CHILLS

REACTIONS (1)
  - Hepatitis [Recovered/Resolved]

NARRATIVE: CASE EVENT DATE: 20171228
